FAERS Safety Report 19718265 (Version 1)
Quarter: 2021Q3

REPORT INFORMATION
  Report Type: Report from Study
  Country: US (occurrence: US)
  Receive Date: 20210819
  Receipt Date: 20210819
  Transmission Date: 20211014
  Serious: Yes (Other)
  Sender: FDA-Public Use
  Company Number: NVSC2021US182078

PATIENT
  Sex: Female

DRUGS (2)
  1. VOTRIENT [Suspect]
     Active Substance: PAZOPANIB HYDROCHLORIDE
     Dosage: 200 MG, QD
     Route: 065
  2. VOTRIENT [Suspect]
     Active Substance: PAZOPANIB HYDROCHLORIDE
     Indication: OVARIAN CANCER
     Dosage: 800 MG, QD
     Route: 065
     Dates: start: 20210713

REACTIONS (8)
  - Product use in unapproved indication [Unknown]
  - Muscular weakness [Unknown]
  - Blood pressure increased [Unknown]
  - Blood pressure systolic increased [Unknown]
  - Neoplasm [Unknown]
  - Muscle spasms [Unknown]
  - Pain [Unknown]
  - Diarrhoea [Unknown]
